FAERS Safety Report 16991402 (Version 1)
Quarter: 2019Q4

REPORT INFORMATION
  Report Type: Spontaneous
  Country: JP (occurrence: JP)
  Receive Date: 20191104
  Receipt Date: 20191104
  Transmission Date: 20200122
  Serious: Yes (Other)
  Sender: FDA-Public Use
  Company Number: JP-CELGENEUS-JPN-20190808819

PATIENT
  Sex: Female
  Weight: 52 kg

DRUGS (4)
  1. EVEROLIMUS. [Concomitant]
     Active Substance: EVEROLIMUS
     Indication: CARCINOID TUMOUR
     Route: 048
     Dates: start: 20170116, end: 20170419
  2. ABRAXANE [Suspect]
     Active Substance: PACLITAXEL
     Indication: CARCINOID TUMOUR
     Dosage: 151 MILLIGRAM
     Route: 041
     Dates: start: 20170116, end: 20170419
  3. ABRAXANE [Suspect]
     Active Substance: PACLITAXEL
     Indication: OFF LABEL USE
     Route: 041
     Dates: start: 20180307
  4. CARBOPLATIN. [Concomitant]
     Active Substance: CARBOPLATIN
     Indication: CARCINOID TUMOUR
     Route: 041
     Dates: start: 20170116, end: 20170419

REACTIONS (3)
  - Bone marrow failure [Unknown]
  - Premature delivery [Recovered/Resolved]
  - Maternal exposure during pregnancy [Recovered/Resolved]
